FAERS Safety Report 7640288-7 (Version None)
Quarter: 2011Q3

REPORT INFORMATION
  Report Type: 
  Country: None (occurrence: None)
  Receive Date: 20110728
  Receipt Date: 20110718
  Transmission Date: 20111222
  Serious: Yes (Hospitalization)
  Sender: FDA-Public Use
  Company Number: GB-BAYER-2011-064649

PATIENT
  Sex: Male

DRUGS (1)
  1. KOGENATE [Suspect]
     Indication: PROPHYLAXIS
     Dosage: 250 U, TIW

REACTIONS (2)
  - GASTROINTESTINAL HAEMORRHAGE [None]
  - ANTI FACTOR VIII ANTIBODY POSITIVE [None]
